FAERS Safety Report 25477010 (Version 1)
Quarter: 2025Q2

REPORT INFORMATION
  Report Type: Spontaneous
  Country: US (occurrence: US)
  Receive Date: 20250625
  Receipt Date: 20250625
  Transmission Date: 20250716
  Serious: No
  Sender: ROCHE
  Company Number: US-ROCHE-10000317311

PATIENT
  Age: 62 Year
  Sex: Male
  Weight: 81.65 kg

DRUGS (7)
  1. ACTEMRA [Suspect]
     Active Substance: TOCILIZUMAB
     Indication: Rheumatoid arthritis
     Route: 058
     Dates: start: 2022
  2. GABAPENTIN [Concomitant]
     Active Substance: GABAPENTIN
     Dosage: IN THE MORNING
  3. GABAPENTIN [Concomitant]
     Active Substance: GABAPENTIN
     Dosage: IN THE AFTERNOON
  4. GABAPENTIN [Concomitant]
     Active Substance: GABAPENTIN
     Dosage: ONCE IN THE EVENING
  5. HYDROXYCHLOROQUINE SULFATE [Concomitant]
     Active Substance: HYDROXYCHLOROQUINE SULFATE
     Indication: Rheumatoid arthritis
  6. PREDNISONE [Concomitant]
     Active Substance: PREDNISONE
  7. CELECOXIB [Concomitant]
     Active Substance: CELECOXIB

REACTIONS (2)
  - Product storage error [Unknown]
  - No adverse event [Unknown]

NARRATIVE: CASE EVENT DATE: 20250617
